FAERS Safety Report 5084595-3 (Version None)
Quarter: 2006Q3

REPORT INFORMATION
  Report Type: 
  Country: None (occurrence: None)
  Receive Date: 20060818
  Receipt Date: 20060818
  Transmission Date: 20061208
  Serious: Yes (Hospitalization)
  Sender: FDA-Public Use
  Company Number: None

PATIENT
  Sex: Male
  Weight: 113.9 kg

DRUGS (7)
  1. TOSITUMOMAB;  GLAXO SMITH KLINE [Suspect]
     Indication: MULTIPLE MYELOMA
     Dosage: 450 MG; 35 MG WITH IODINE I 131
     Dates: start: 20060718
  2. TOSITUMOMAB;  GLAXO SMITH KLINE [Suspect]
     Indication: MULTIPLE MYELOMA
     Dosage: 450 MG; 35 MG WITH IODINE I 131
     Dates: start: 20060726
  3. IODINE I-131 THERAPEUTIC SOLUTION [Suspect]
     Indication: MULTIPLE MYELOMA
     Dosage: 5 MCI ON 7/18/06;   75.6 MCI, 7/26/06
     Dates: start: 20060718
  4. IODINE I-131 THERAPEUTIC SOLUTION [Suspect]
     Indication: MULTIPLE MYELOMA
     Dosage: 5 MCI ON 7/18/06;   75.6 MCI, 7/26/06
     Dates: start: 20060726
  5. SATURATED SOLUTION OF POTASSIUM IODINE [Concomitant]
  6. AMBIEN [Concomitant]
  7. CARDURA [Concomitant]

REACTIONS (9)
  - CHILLS [None]
  - DEHYDRATION [None]
  - DIZZINESS [None]
  - ELECTROCARDIOGRAM ABNORMAL [None]
  - HUMAN ANTI-MOUSE ANTIBODY POSITIVE [None]
  - LOSS OF CONSCIOUSNESS [None]
  - ORTHOSTATIC HYPERTENSION [None]
  - PHARYNGOLARYNGEAL PAIN [None]
  - PYREXIA [None]
